FAERS Safety Report 8607035 (Version 6)
Quarter: 2014Q3

REPORT INFORMATION
  Report Type: Spontaneous
  Country: US (occurrence: US)
  Receive Date: 20120611
  Receipt Date: 20140825
  Transmission Date: 20150326
  Serious: Yes (Hospitalization, Disabling, Other)
  Sender: FDA-Public Use
  Company Number: US-ASTRAZENECA-2012SE35419

PATIENT
  Age: 48 Year
  Sex: Female
  Weight: 79.8 kg

DRUGS (34)
  1. NEXIUM [Suspect]
     Active Substance: ESOMEPRAZOLE MAGNESIUM
     Indication: GASTROOESOPHAGEAL REFLUX DISEASE
     Route: 048
     Dates: start: 20050828
  2. AMLODIPINE [Concomitant]
     Active Substance: AMLODIPINE BESYLATE
     Indication: BLOOD PRESSURE ABNORMAL
  3. FLEXERIL [Concomitant]
     Active Substance: CYCLOBENZAPRINE HYDROCHLORIDE
     Indication: MUSCLE SPASMS
     Dates: start: 20091012
  4. AMOXICILLIN. [Concomitant]
     Active Substance: AMOXICILLIN
  5. FLEXERIL [Concomitant]
     Active Substance: CYCLOBENZAPRINE HYDROCHLORIDE
     Indication: MUSCLE RELAXANT THERAPY
     Dates: start: 20091012
  6. TUMS [Concomitant]
     Active Substance: CALCIUM CARBONATE
  7. LISINOPRIL. [Concomitant]
     Active Substance: LISINOPRIL
     Indication: HYPERTENSION
     Route: 048
     Dates: start: 20050218
  8. GABAPENTIN. [Concomitant]
     Active Substance: GABAPENTIN
  9. BACTRIM DS [Concomitant]
     Active Substance: SULFAMETHOXAZOLE\TRIMETHOPRIM
     Dosage: 800-160MG ONE BY MOUTH TWO TIMES PER DAY
     Dates: start: 20100127
  10. NORCO [Concomitant]
     Active Substance: ACETAMINOPHEN\HYDROCODONE BITARTRATE
     Dosage: 5MG-500MG 1-2 TAB TID PRN PAIN
     Dates: start: 20100115
  11. SKELAXIN [Concomitant]
     Active Substance: METAXALONE
     Dates: start: 20050113
  12. OMEPRAZOLE. [Suspect]
     Active Substance: OMEPRAZOLE
     Indication: GASTROOESOPHAGEAL REFLUX DISEASE
     Route: 048
  13. PRAVASTATIN [Concomitant]
     Active Substance: PRAVASTATIN\PRAVASTATIN SODIUM
  14. CRESTOR [Concomitant]
     Active Substance: ROSUVASTATIN CALCIUM
     Indication: BLOOD CHOLESTEROL ABNORMAL
     Route: 048
     Dates: start: 20090112
  15. ZYRTEC [Concomitant]
     Active Substance: CETIRIZINE HYDROCHLORIDE
     Indication: MULTIPLE ALLERGIES
     Dates: start: 20091110
  16. CYCLOBENZAPRINE [Concomitant]
     Active Substance: CYCLOBENZAPRINE
     Route: 048
     Dates: start: 20090909
  17. HYDROCODONE [Concomitant]
     Active Substance: HYDROCODONE
     Route: 048
  18. PREVACID [Concomitant]
     Active Substance: LANSOPRAZOLE
  19. ADVAIR HFA [Concomitant]
     Active Substance: FLUTICASONE PROPIONATE\SALMETEROL XINAFOATE
  20. METHYLPRED [Concomitant]
     Active Substance: METHYLPREDNISOLONE
     Dates: start: 20090909
  21. NEXIUM [Suspect]
     Active Substance: ESOMEPRAZOLE MAGNESIUM
     Indication: GASTROOESOPHAGEAL REFLUX DISEASE
     Route: 048
     Dates: start: 2004, end: 2011
  22. FLONASE [Concomitant]
     Active Substance: FLUTICASONE PROPIONATE
  23. VYTORIN [Concomitant]
     Active Substance: EZETIMIBE\SIMVASTATIN
  24. NAPROXEN. [Concomitant]
     Active Substance: NAPROXEN
  25. VALIUM [Concomitant]
     Active Substance: DIAZEPAM
     Dates: start: 20130227
  26. METOPROLO [Concomitant]
     Indication: CARDIAC DISORDER
  27. LIPITOR [Concomitant]
     Active Substance: ATORVASTATIN CALCIUM
  28. AMBIEN [Concomitant]
     Active Substance: ZOLPIDEM TARTRATE
     Dosage: 10 1 PO Q HS
     Route: 048
  29. TRAMADOL [Concomitant]
     Active Substance: TRAMADOL
     Dates: start: 20050113
  30. CYCLOBENZAPRINE [Concomitant]
     Active Substance: CYCLOBENZAPRINE
     Route: 048
     Dates: start: 20090909
  31. HYDROCORTISONE. [Concomitant]
     Active Substance: HYDROCORTISONE
     Dates: start: 20050603
  32. METFORMIN [Concomitant]
     Active Substance: METFORMIN HYDROCHLORIDE
     Indication: DIABETES MELLITUS
  33. MORPHINE [Concomitant]
     Active Substance: MORPHINE
     Indication: PAIN
  34. MS CONTIN [Concomitant]
     Active Substance: MORPHINE SULFATE
     Route: 048

REACTIONS (34)
  - Musculoskeletal disorder [Unknown]
  - Drug hypersensitivity [Unknown]
  - Abdominal discomfort [Unknown]
  - Nerve injury [Unknown]
  - Musculoskeletal stiffness [Unknown]
  - Myalgia [Unknown]
  - Osteonecrosis [Unknown]
  - Spinal disorder [Unknown]
  - Abdominal pain upper [Unknown]
  - Insomnia [Unknown]
  - Multiple fractures [Unknown]
  - Swelling [Unknown]
  - Bone pain [Unknown]
  - Arthritis [Unknown]
  - Facet joint syndrome [Unknown]
  - Arthropathy [Unknown]
  - Diabetic neuropathy [Unknown]
  - Osteoporosis [Unknown]
  - Bursitis [Unknown]
  - Hip fracture [Unknown]
  - Injury [Unknown]
  - Back pain [Unknown]
  - Osteoarthritis [Unknown]
  - Depression [Unknown]
  - Type 2 diabetes mellitus [Unknown]
  - Osteopenia [Unknown]
  - Spinal osteoarthritis [Unknown]
  - Intervertebral disc protrusion [Unknown]
  - Arthralgia [Unknown]
  - Bone loss [Unknown]
  - Paraesthesia [Unknown]
  - Pneumonia [Unknown]
  - Bronchitis [Unknown]
  - Hypoaesthesia [Unknown]

NARRATIVE: CASE EVENT DATE: 2004
